FAERS Safety Report 15890975 (Version 2)
Quarter: 2019Q1

REPORT INFORMATION
  Report Type: Report from Study
  Country: US (occurrence: US)
  Receive Date: 20190130
  Receipt Date: 20190221
  Transmission Date: 20190417
  Serious: Yes (Hospitalization)
  Sender: FDA-Public Use
  Company Number: PHHY2019US017770

PATIENT
  Age: 38 Year
  Sex: Female
  Weight: 111.6 kg

DRUGS (3)
  1. GILENYA [Suspect]
     Active Substance: FINGOLIMOD HYDROCHLORIDE
     Indication: MULTIPLE SCLEROSIS
     Dosage: 0.5 MG, QD
     Route: 048
     Dates: start: 201512, end: 201711
  2. HYDROCHLOROTHIAZIDE. [Concomitant]
     Active Substance: HYDROCHLOROTHIAZIDE
     Indication: PRODUCT USED FOR UNKNOWN INDICATION
     Dosage: 12.5 MG, UNK
     Route: 048
  3. GILENYA [Suspect]
     Active Substance: FINGOLIMOD HYDROCHLORIDE
     Dosage: 0.5 MG, QOD
     Route: 048
     Dates: start: 201711, end: 20181106

REACTIONS (12)
  - Nausea [Recovering/Resolving]
  - Vomiting [Recovering/Resolving]
  - Prescribed underdose [Unknown]
  - Visual field defect [Recovering/Resolving]
  - Polydipsia [Recovering/Resolving]
  - Tumefactive multiple sclerosis [Recovered/Resolved with Sequelae]
  - Multiple sclerosis relapse [Recovered/Resolved with Sequelae]
  - Hyperglycaemia [Recovering/Resolving]
  - Polyuria [Recovering/Resolving]
  - Dehydration [Recovering/Resolving]
  - Diabetic ketoacidosis [Recovering/Resolving]
  - Headache [Recovered/Resolved]

NARRATIVE: CASE EVENT DATE: 201711
